FAERS Safety Report 6433069-3 (Version None)
Quarter: 2009Q4

REPORT INFORMATION
  Report Type: 
  Country: None (occurrence: None)
  Receive Date: 20091105
  Receipt Date: 20091022
  Transmission Date: 20100525
  Serious: Yes (Death)
  Sender: FDA-Public Use
  Company Number: 2009AP004269

PATIENT
  Age: 47 Year
  Sex: Female

DRUGS (5)
  1. PREDNISOLONE [Suspect]
  2. MELPHALAN [Suspect]
  3. TACROLIMUS [Suspect]
  4. PREDNISONE [Concomitant]
  5. AZATHIOPRINE [Concomitant]

REACTIONS (2)
  - DRUG LEVEL BELOW THERAPEUTIC [None]
  - TRANSPLANT REJECTION [None]
